FAERS Safety Report 23081692 (Version 1)
Quarter: 2023Q4

REPORT INFORMATION
  Report Type: Spontaneous
  Country: FR (occurrence: None)
  Receive Date: 20231019
  Receipt Date: 20231019
  Transmission Date: 20240109
  Serious: Yes (Life-Threatening, Hospitalization)
  Sender: FDA-Public Use
  Company Number: 2023A234405

PATIENT
  Age: 3 Day
  Sex: Female
  Weight: 3.5 kg

DRUGS (1)
  1. BEYFORTUS [Suspect]
     Active Substance: NIRSEVIMAB-ALIP
     Indication: Antiviral prophylaxis
     Dosage: 50 MG 1 TIME
     Route: 030
     Dates: start: 20231006, end: 20231006

REACTIONS (1)
  - Perinatal stroke [Not Recovered/Not Resolved]

NARRATIVE: CASE EVENT DATE: 20231007
